FAERS Safety Report 5690611-8 (Version None)
Quarter: 2008Q1

REPORT INFORMATION
  Report Type: 
  Country: None (occurrence: None)
  Receive Date: 20080331
  Receipt Date: 20080331
  Transmission Date: 20080703
  Serious: Yes (Life-Threatening, Hospitalization)
  Sender: FDA-Public Use
  Company Number: None

PATIENT
  Sex: Male
  Weight: 102.0593 kg

DRUGS (1)
  1. CVS VI-Q-TUSS DOES NOT SAY QUALTEST [Suspect]
     Indication: ANTITUSSIVE THERAPY
     Dosage: ONE TEASPOON EVERY 4-6 HOURS PO ONE DOSE
     Route: 048
     Dates: start: 20080328, end: 20080328

REACTIONS (17)
  - ADVERSE DRUG REACTION [None]
  - ASTHENIA [None]
  - BLOOD PRESSURE INCREASED [None]
  - DIZZINESS [None]
  - DYSPNOEA [None]
  - FEELING ABNORMAL [None]
  - GAIT DISTURBANCE [None]
  - HYPERHIDROSIS [None]
  - HYPOAESTHESIA [None]
  - HYPOAESTHESIA ORAL [None]
  - MUSCULAR WEAKNESS [None]
  - PARAESTHESIA [None]
  - POISONING [None]
  - SPEECH DISORDER [None]
  - THINKING ABNORMAL [None]
  - VISION BLURRED [None]
  - VOMITING [None]
